FAERS Safety Report 4666392-3 (Version None)
Quarter: 2005Q2

REPORT INFORMATION
  Report Type: 
  Country: None (occurrence: None)
  Receive Date: 20050519
  Receipt Date: 20050323
  Transmission Date: 20051028
  Serious: Yes (Hospitalization)
  Sender: FDA-Public Use
  Company Number: 2005AP01926

PATIENT
  Age: 20369 Day
  Sex: Male
  Weight: 56 kg

DRUGS (20)
  1. DIPRIVAN [Suspect]
     Indication: SEDATION
     Route: 042
     Dates: start: 20050313, end: 20050315
  2. MINOCYCLINE HCL [Concomitant]
     Indication: PNEUMONIA
     Route: 041
     Dates: start: 20050312, end: 20050313
  3. MINOCYCLINE HCL [Concomitant]
     Route: 041
     Dates: start: 20050314, end: 20050320
  4. CARBENIN [Concomitant]
     Indication: PNEUMONIA
     Route: 041
     Dates: start: 20050312, end: 20050313
  5. CARBENIN [Concomitant]
     Route: 041
     Dates: start: 20050314, end: 20050317
  6. DIFLUCAN [Concomitant]
     Indication: PNEUMONIA
     Route: 041
     Dates: start: 20050312, end: 20050312
  7. DIFLUCAN [Concomitant]
     Route: 041
     Dates: start: 20050314, end: 20050323
  8. FOY [Concomitant]
     Dates: start: 20050313, end: 20050316
  9. FRAGMIN [Concomitant]
     Dates: start: 20050313, end: 20050323
  10. ELASPOL [Concomitant]
     Dates: start: 20050313, end: 20050320
  11. NEUART [Concomitant]
     Route: 041
     Dates: start: 20050313, end: 20050313
  12. VENOGLOBULIN-I [Concomitant]
     Indication: PNEUMONIA
     Route: 041
     Dates: start: 20050313, end: 20050315
  13. SOLU-MEDROL [Concomitant]
     Indication: ACUTE RESPIRATORY DISTRESS SYNDROME
     Route: 041
     Dates: start: 20050313, end: 20050315
  14. PLATELETS [Concomitant]
     Route: 041
     Dates: start: 20050313, end: 20050316
  15. MUSCURATE [Concomitant]
     Route: 042
     Dates: start: 20050313, end: 20050313
  16. MUSCURATE [Concomitant]
     Route: 042
     Dates: start: 20050314, end: 20050314
  17. MUSCURATE [Concomitant]
     Route: 042
     Dates: start: 20050315, end: 20050317
  18. MUSCURATE [Concomitant]
     Route: 042
     Dates: start: 20050318, end: 20050319
  19. GASTER [Concomitant]
     Route: 042
     Dates: start: 20050313, end: 20050326
  20. CATABON [Concomitant]
     Route: 041
     Dates: start: 20050313

REACTIONS (5)
  - BRONCHOPULMONARY ASPERGILLOSIS [None]
  - HEPATOMEGALY [None]
  - MULTI-ORGAN FAILURE [None]
  - RHABDOMYOLYSIS [None]
  - SPLENOMEGALY [None]
